FAERS Safety Report 14550882 (Version 5)
Quarter: 2021Q4

REPORT INFORMATION
  Report Type: Other
  Country: US (occurrence: None)
  Receive Date: 20180220
  Receipt Date: 20211214
  Transmission Date: 20220303
  Serious: Yes (Hospitalization, Other)
  Sender: FDA-Public Use
  Company Number: US-ROCHE-2077144

PATIENT
  Age: 59 Year
  Sex: Female
  Weight: 88.530 kg

DRUGS (5)
  1. ERIVEDGE [Suspect]
     Active Substance: VISMODEGIB
     Indication: Basal cell carcinoma
     Route: 048
     Dates: start: 20171230
  2. ERIVEDGE [Suspect]
     Active Substance: VISMODEGIB
     Route: 048
     Dates: start: 20180101, end: 20180212
  3. ERIVEDGE [Suspect]
     Active Substance: VISMODEGIB
     Route: 048
     Dates: start: 20181109
  4. TYLENOL [Concomitant]
     Active Substance: ACETAMINOPHEN
  5. SIMVASTATIN [Concomitant]
     Active Substance: SIMVASTATIN

REACTIONS (11)
  - Hepatotoxicity [Recovering/Resolving]
  - Liver injury [Unknown]
  - Liver function test increased [Unknown]
  - Stress [Unknown]
  - Diarrhoea [Recovering/Resolving]
  - Vomiting [Recovered/Resolved]
  - Malaise [Unknown]
  - Muscle spasms [Unknown]
  - Anxiety [Unknown]
  - Palpitations [Unknown]
  - Memory impairment [Unknown]

NARRATIVE: CASE EVENT DATE: 20180201
